FAERS Safety Report 7866646-3 (Version None)
Quarter: 2011Q4

REPORT INFORMATION
  Report Type: 
  Country: None (occurrence: None)
  Receive Date: 20111028
  Receipt Date: 20110719
  Transmission Date: 20120403
  Serious: No
  Sender: FDA-Public Use
  Company Number: US-GLAXOSMITHKLINE-A0937351A

PATIENT
  Age: 60 Year
  Sex: Female

DRUGS (13)
  1. FLONASE [Concomitant]
  2. ALLEGRA [Concomitant]
  3. ADVAIR DISKUS 100/50 [Suspect]
     Indication: ASTHMA
     Route: 055
  4. HUMALOG [Concomitant]
  5. TRAVATAN [Concomitant]
  6. INSULIN [Concomitant]
  7. NORVASC [Concomitant]
  8. LOESTRIN 1.5/30 [Concomitant]
  9. CLARITIN [Concomitant]
  10. NEXIUM [Concomitant]
  11. SINGULAIR [Concomitant]
  12. AZOPT [Concomitant]
  13. ALPHAGAN [Concomitant]

REACTIONS (4)
  - BLOOD PRESSURE INCREASED [None]
  - RENAL DISORDER [None]
  - BLOOD GLUCOSE FLUCTUATION [None]
  - DRUG INEFFECTIVE [None]
